FAERS Safety Report 10311819 (Version 1)
Quarter: 2014Q3

REPORT INFORMATION
  Report Type: Report from Study
  Country: BR (occurrence: BR)
  Receive Date: 20140717
  Receipt Date: 20140717
  Transmission Date: 20150326
  Serious: Yes (Other)
  Sender: FDA-Public Use
  Company Number: BR-ABBVIE-14P-020-1259610-00

PATIENT
  Age: 58 Year
  Sex: Female
  Weight: 74 kg

DRUGS (6)
  1. GLIBENCLAMIDE [Concomitant]
     Active Substance: GLYBURIDE
     Indication: DIABETES MELLITUS
     Dosage: ONCE DAILY
     Route: 048
     Dates: start: 201401
  2. TECNOMET [Concomitant]
     Indication: ARTHRITIS
     Route: 048
     Dates: start: 2012
  3. HUMIRA [Suspect]
     Active Substance: ADALIMUMAB
     Indication: RHEUMATOID ARTHRITIS
     Route: 058
     Dates: start: 20080501
  4. METICORTEN [Concomitant]
     Active Substance: PREDNISONE
     Indication: ARTHRITIS
     Dosage: ONCE DAILY
     Route: 048
     Dates: start: 2009
  5. MECLIN [Concomitant]
     Indication: ARTHRITIS
     Route: 048
     Dates: start: 2012
  6. LEXOTAN [Concomitant]
     Active Substance: BROMAZEPAM
     Indication: SEDATIVE THERAPY
     Route: 048
     Dates: start: 2012

REACTIONS (5)
  - Pulmonary embolism [Recovering/Resolving]
  - Pulmonary infarction [Recovering/Resolving]
  - Thrombosis [Recovering/Resolving]
  - Fibromyalgia [Unknown]
  - Investigation abnormal [Unknown]

NARRATIVE: CASE EVENT DATE: 201403
